FAERS Safety Report 18117112 (Version 2)
Quarter: 2020Q3

REPORT INFORMATION
  Report Type: Report from Study
  Country: CO (occurrence: CO)
  Receive Date: 20200805
  Receipt Date: 20200820
  Transmission Date: 20201103
  Serious: Yes (Other)
  Sender: FDA-Public Use
  Company Number: NVSC2020CO216756

PATIENT
  Age: 73 Year
  Sex: Male
  Weight: 84 kg

DRUGS (17)
  1. CLONAZEPAM. [Concomitant]
     Active Substance: CLONAZEPAM
     Indication: SLEEP DISORDER
     Dosage: 2.5 MG (12 DROPS/2.5 MG), QD (AT NIGHT)
     Route: 048
  2. ACETYLSALICYLIC ACID [Concomitant]
     Active Substance: ASPIRIN
     Dosage: 100 MG (ONE OF 100 MG), QD
     Route: 048
  3. LEVOTHYROXINE. [Concomitant]
     Active Substance: LEVOTHYROXINE
     Indication: THYROID DISORDER
     Dosage: 75 MG (ONE OF 75 MG), QD
     Route: 048
  4. COSENTYX [Suspect]
     Active Substance: SECUKINUMAB
     Dosage: UNK
     Route: 065
     Dates: start: 20200723
  5. METOPROLOL. [Suspect]
     Active Substance: METOPROLOL
     Indication: CARDIAC DISORDER
     Dosage: 50 MG, Q12H
     Route: 048
  6. ENALAPRIL MALEATE. [Concomitant]
     Active Substance: ENALAPRIL MALEATE
     Indication: HYPERTENSION
     Dosage: 20 MG, QD
     Route: 048
  7. LEVETIRACETAM. [Concomitant]
     Active Substance: LEVETIRACETAM
     Indication: SEIZURE
     Dosage: 500 MG, Q12H
     Route: 048
  8. ACETYLSALICYLIC ACID [Concomitant]
     Active Substance: ASPIRIN
     Indication: ANTICOAGULANT THERAPY
     Dosage: UNK
     Route: 065
  9. BIPERIDEN [Concomitant]
     Active Substance: BIPERIDEN
     Indication: PRODUCT USED FOR UNKNOWN INDICATION
     Dosage: 2 MG, QD (AFTER BREAKFAST)
     Route: 048
  10. NIFEDIPINE. [Concomitant]
     Active Substance: NIFEDIPINE
     Indication: HYPERTENSION
     Dosage: 30 MG (ONE OF 30 MG), Q12H
     Route: 048
  11. COSENTYX [Suspect]
     Active Substance: SECUKINUMAB
     Indication: PSORIASIS
     Dosage: 300 MG, QMO
     Route: 058
     Dates: start: 20190912
  12. METFORMIN [Suspect]
     Active Substance: METFORMIN HYDROCHLORIDE
     Indication: DIABETES MELLITUS
     Dosage: 850 MG (2 OF 850 MG), QD
     Route: 048
  13. CLONIDINE. [Concomitant]
     Active Substance: CLONIDINE
     Indication: HYPERTENSION
     Dosage: 150 MG (ONE OF 150 MG), Q12H
     Route: 048
  14. FUROSEMIDE. [Concomitant]
     Active Substance: FUROSEMIDE
     Indication: MICTURITION DISORDER
     Dosage: 40 MG (ONE OF 40 MG), QD (IN THE MORNING)
     Route: 048
  15. RIVASTIGMINE. [Suspect]
     Active Substance: RIVASTIGMINE
     Indication: MENTAL DISORDER
     Dosage: 9 MG (ONE OF 9 MG), QD (IN THE MORNING)
     Route: 003
  16. RISPERIDONE. [Concomitant]
     Active Substance: RISPERIDONE
     Indication: MENTAL DISORDER
     Dosage: 1 MG, QD
     Route: 048
  17. OMEPRAZOLE. [Concomitant]
     Active Substance: OMEPRAZOLE
     Indication: GASTRITIS
     Dosage: 20 MG (ONE OF 20 MG), QD (IN THE MORNING)
     Route: 048

REACTIONS (5)
  - Product prescribing error [Unknown]
  - Oral pain [Unknown]
  - Gingival abscess [Unknown]
  - Stomatitis [Unknown]
  - Product use in unapproved indication [Unknown]

NARRATIVE: CASE EVENT DATE: 20200710
